FAERS Safety Report 7548639-9 (Version None)
Quarter: 2011Q2

REPORT INFORMATION
  Report Type: 
  Country: None (occurrence: None)
  Receive Date: 20110608
  Receipt Date: 20110524
  Transmission Date: 20111010
  Serious: Yes (Disabling)
  Sender: FDA-Public Use
  Company Number: 2011US000061

PATIENT
  Age: 49 Year
  Sex: Male

DRUGS (1)
  1. ENTEREG [Suspect]
     Indication: POSTOPERATIVE ILEUS
     Dosage: 12 MG, 1X, PO
     Route: 048

REACTIONS (3)
  - POST PROCEDURAL COMPLICATION [None]
  - BLOOD POTASSIUM INCREASED [None]
  - MYOCARDIAL INFARCTION [None]
